FAERS Safety Report 16781622 (Version 1)
Quarter: 2019Q3

REPORT INFORMATION
  Report Type: Spontaneous
  Country: FR (occurrence: FR)
  Receive Date: 20190906
  Receipt Date: 20190906
  Transmission Date: 20191005
  Serious: Yes (Hospitalization)
  Sender: FDA-Public Use
  Company Number: FR-009507513-1909FRA000606

PATIENT
  Age: 64 Year
  Sex: Female
  Weight: 84.5 kg

DRUGS (3)
  1. CEFEPIME [Suspect]
     Active Substance: CEFEPIME HYDROCHLORIDE
     Indication: INFECTION
     Dosage: NOT SPECIFIED
     Dates: start: 20190709, end: 20190722
  2. FLAGYL (METRONIDAZOLE BENZOATE) [Suspect]
     Active Substance: METRONIDAZOLE BENZOATE
     Indication: INFECTION
     Dosage: NOT SPECIFIED
     Dates: start: 20190709, end: 20190722
  3. DAPTOMYCIN. [Suspect]
     Active Substance: DAPTOMYCIN
     Indication: INFECTION
     Dosage: NOT SPECIFIED
     Dates: start: 20190716, end: 20190722

REACTIONS (2)
  - Blood creatinine increased [Recovering/Resolving]
  - Acute kidney injury [Recovering/Resolving]

NARRATIVE: CASE EVENT DATE: 20190722
